FAERS Safety Report 10132430 (Version 2)
Quarter: 2014Q2

REPORT INFORMATION
  Report Type: Spontaneous
  Country: US (occurrence: US)
  Receive Date: 20140428
  Receipt Date: 20140618
  Transmission Date: 20141212
  Serious: Yes (Life-Threatening, Congenital Anomaly)
  Sender: FDA-Public Use
  Company Number: US-B.I. PHARMACEUTICALS,INC./RIDGEFIELD-2014-BI-18462BP

PATIENT
  Age: 64 Year
  Sex: Female
  Weight: 66 kg

DRUGS (10)
  1. SPIRIVA [Suspect]
     Indication: BRONCHIOLITIS
     Dosage: 18 MCG
     Route: 055
     Dates: start: 20140404, end: 20140423
  2. CARVEDILOL [Concomitant]
     Indication: HYPERTENSION
     Dosage: 25 MG
     Route: 048
  3. LISINOPRIL [Concomitant]
     Indication: HYPERTENSION
     Dosage: 5 MG
     Route: 048
  4. TRIAMTERENE/HCTZ [Concomitant]
     Indication: HYPERTENSION
     Dosage: STRENGTH: 37.5/25 MG; DAILY DOSE: 37.5/25 MG
     Route: 048
  5. CLONIDINE [Concomitant]
     Indication: HYPERTENSION
     Dosage: 0.1 MG
     Route: 048
  6. ALPRAZOLAM [Concomitant]
     Indication: ANXIETY
     Dosage: 0.5 MG
     Route: 048
  7. PRILOSEC [Concomitant]
     Indication: GASTROOESOPHAGEAL REFLUX DISEASE
     Dosage: 20 MG
     Route: 048
  8. METFORMIN [Concomitant]
     Indication: DIABETES MELLITUS
     Dosage: 1000 MG
     Route: 048
  9. PROAIR [Concomitant]
     Indication: BRONCHIOLITIS
     Dosage: FORMULATION:INHALATIONSOLUTION
     Route: 055
  10. VALIUM [Concomitant]
     Indication: ANXIETY
     Dosage: 0.5 MG
     Route: 048

REACTIONS (3)
  - Suicidal ideation [Recovered/Resolved]
  - Anxiety [Unknown]
  - Off label use [Unknown]
